FAERS Safety Report 15759841 (Version 1)
Quarter: 2018Q4

REPORT INFORMATION
  Report Type: Spontaneous
  Country: CA (occurrence: CA)
  Receive Date: 20181226
  Receipt Date: 20181226
  Transmission Date: 20190205
  Serious: Yes (Death)
  Sender: FDA-Public Use
  Company Number: CA-TEVA-2018-CA-990888

PATIENT
  Sex: Female

DRUGS (7)
  1. MULTIVITAMINE(S) [Suspect]
     Active Substance: VITAMINS
     Route: 065
  2. PAMIDRONATE DISODIUM FOR INJECTION [Suspect]
     Active Substance: PAMIDRONATE DISODIUM
     Route: 065
  3. PANTOPRAZOLE [Suspect]
     Active Substance: PANTOPRAZOLE
     Route: 065
  4. VITAMIN D [Suspect]
     Active Substance: CHOLECALCIFEROL
     Indication: PRODUCT USED FOR UNKNOWN INDICATION
  5. CALCIUM [Suspect]
     Active Substance: CALCIUM
     Route: 065
  6. FASLODEX [Suspect]
     Active Substance: FULVESTRANT
     Route: 065
  7. PROPRANOLOL [Suspect]
     Active Substance: PROPRANOLOL HYDROCHLORIDE
     Route: 065

REACTIONS (1)
  - Death [Fatal]
